FAERS Safety Report 24598517 (Version 2)
Quarter: 2024Q4

REPORT INFORMATION
  Report Type: Spontaneous
  Country: JP (occurrence: JP)
  Receive Date: 20241110
  Receipt Date: 20241118
  Transmission Date: 20250114
  Serious: Yes (Death, Other)
  Sender: ALEXION PHARMACEUTICALS
  Company Number: JP-ASTRAZENECA-240118561_064320_P_1

PATIENT
  Age: 88 Year

DRUGS (4)
  1. ANDEXXA [Suspect]
     Active Substance: ANDEXANET ALFA
     Indication: Subarachnoid haemorrhage
     Dosage: METHOD A: 400 MG IV AT A RATE OF 30 MG/MIN FOLLOWED BY 480 MG IV AT A RATE OF 4 MG/MIN FOR 2 H
  2. ANDEXXA [Suspect]
     Active Substance: ANDEXANET ALFA
     Dosage: METHOD A: 400 MG IV AT A RATE OF 30 MG/MIN FOLLOWED BY 480 MG IV AT A RATE OF 4 MG/MIN FOR 2 H
  3. APIXABAN [Concomitant]
     Active Substance: APIXABAN
     Indication: Atrial fibrillation
     Dosage: DOSE UNKNOWN
  4. APIXABAN [Concomitant]
     Active Substance: APIXABAN
     Dosage: DOSE UNKNOWN

REACTIONS (1)
  - Pneumonia [Fatal]
